FAERS Safety Report 10530789 (Version 1)
Quarter: 2014Q4

REPORT INFORMATION
  Report Type: Spontaneous
  Country: US (occurrence: None)
  Receive Date: 20141017
  Receipt Date: 20141017
  Transmission Date: 20150528
  Serious: Yes (Other)
  Sender: FDA-Public Use
  Company Number: 54973 AE 1566

PATIENT
  Age: 35 Month
  Sex: Male

DRUGS (1)
  1. BABY TEETHING [Suspect]
     Active Substance: ARABICA COFFEE BEAN\ATROPA BELLADONNA\CALCIUM PHOSPHATE\CHAMOMILE
     Indication: TEETHING
     Dosage: UNKNOWN DOSE X 6 MOS

REACTIONS (5)
  - Generalised tonic-clonic seizure [None]
  - Staring [None]
  - Petit mal epilepsy [None]
  - Seizure [None]
  - Epilepsy [None]

NARRATIVE: CASE EVENT DATE: 2005
